FAERS Safety Report 4589894-7 (Version None)
Quarter: 2005Q1

REPORT INFORMATION
  Report Type: 
  Country: None (occurrence: None)
  Receive Date: 20050125
  Receipt Date: 20040824
  Transmission Date: 20050727
  Serious: No
  Sender: FDA-Public Use
  Company Number: USA040875448

PATIENT
  Age: 78 Year
  Sex: Female
  Weight: 80 kg

DRUGS (4)
  1. FORTEO [Suspect]
     Indication: OSTEOPOROSIS
     Dosage: 20 UG/1 DAY
     Dates: start: 20040811
  2. CALCIUM AND VITAMIN D [Concomitant]
  3. VITAMIN B-12 [Concomitant]
  4. VITAMINS [Concomitant]

REACTIONS (3)
  - BACK PAIN [None]
  - MEDICATION ERROR [None]
  - OVERDOSE [None]
